FAERS Safety Report 9498611 (Version 1)
Quarter: 2013Q3

REPORT INFORMATION
  Report Type: Spontaneous
  Country: US (occurrence: US)
  Receive Date: 20130904
  Receipt Date: 20130904
  Transmission Date: 20140515
  Serious: No
  Sender: FDA-Public Use
  Company Number: US-PFIZER INC-2013252040

PATIENT
  Age: 80 Year
  Sex: Female
  Weight: 68.03 kg

DRUGS (1)
  1. TIKOSYN [Suspect]
     Indication: ATRIAL FLUTTER
     Dosage: 250 UG, 2X/DAY
     Dates: start: 201308

REACTIONS (1)
  - Drug intolerance [Unknown]
